FAERS Safety Report 5252536-1 (Version None)
Quarter: 2007Q1

REPORT INFORMATION
  Report Type: 
  Country: None (occurrence: None)
  Receive Date: 20070227
  Receipt Date: 20070216
  Transmission Date: 20070707
  Serious: Yes (Hospitalization)
  Sender: FDA-Public Use
  Company Number: 153148ISR

PATIENT
  Age: 73 Year
  Sex: Female

DRUGS (1)
  1. CITALOPRAM HYDROBROMIDE [Suspect]
     Indication: DEPRESSION
     Dosage: ?? (20 MG) ORAL
     Route: 048
     Dates: start: 20070106, end: 20070107

REACTIONS (1)
  - ANGLE CLOSURE GLAUCOMA [None]
